FAERS Safety Report 24203699 (Version 1)
Quarter: 2024Q3

REPORT INFORMATION
  Report Type: Spontaneous
  Country: GB (occurrence: GB)
  Receive Date: 20240813
  Receipt Date: 20240813
  Transmission Date: 20241017
  Serious: Yes (Other)
  Sender: ACCORD
  Company Number: None

PATIENT
  Age: 85 Year

DRUGS (10)
  1. CLOPIDOGREL [Suspect]
     Active Substance: CLOPIDOGREL BISULFATE
     Indication: Product used for unknown indication
     Dosage: 75MG OD
  2. IRBESARTAN [Concomitant]
     Active Substance: IRBESARTAN
  3. BISOPROLOL [Concomitant]
     Active Substance: BISOPROLOL\BISOPROLOL FUMARATE
  4. DICLOFENAC [Concomitant]
     Active Substance: DICLOFENAC
     Dosage: DICLOFENAC DIETHYLAMMONIUM 1.16% GEL
  5. SIMVASTATIN [Concomitant]
     Active Substance: SIMVASTATIN
  6. FUROSEMIDE [Concomitant]
     Active Substance: FUROSEMIDE
  7. ACETAMINOPHEN [Concomitant]
     Active Substance: ACETAMINOPHEN
  8. DOXAZOSIN [Concomitant]
     Active Substance: DOXAZOSIN MESYLATE
  9. LANSOPRAZOLE [Concomitant]
     Active Substance: LANSOPRAZOLE
  10. NITROGLYCERIN [Concomitant]
     Active Substance: NITROGLYCERIN
     Dosage: GLYCERYL TRINITRATE 400 MICROGRAMS

REACTIONS (1)
  - Cerebral haemorrhage [Unknown]
